FAERS Safety Report 18146387 (Version 1)
Quarter: 2020Q3

REPORT INFORMATION
  Report Type: Spontaneous
  Country: US (occurrence: US)
  Receive Date: 20200813
  Receipt Date: 20200813
  Transmission Date: 20201103
  Serious: Yes (Disabling)
  Sender: FDA-Public Use
  Company Number: US-ALEXION-A202011672

PATIENT
  Age: 37 Year
  Sex: Female

DRUGS (1)
  1. SOLIRIS [Suspect]
     Active Substance: ECULIZUMAB
     Indication: MYASTHENIA GRAVIS
     Dosage: UNK, Q2W
     Route: 065
     Dates: start: 202001

REACTIONS (1)
  - Diplopia [Not Recovered/Not Resolved]

NARRATIVE: CASE EVENT DATE: 202007
